FAERS Safety Report 13352919 (Version 3)
Quarter: 2017Q2

REPORT INFORMATION
  Report Type: Report from Study
  Country: None (occurrence: US)
  Receive Date: 20170320
  Receipt Date: 20170627
  Transmission Date: 20170830
  Serious: No
  Sender: FDA-Public Use
  Company Number: US-ABBVIE-17K-163-1906468-00

PATIENT
  Age: 51 Year
  Sex: Female

DRUGS (2)
  1. HUMIRA [Suspect]
     Active Substance: ADALIMUMAB
     Indication: UVEITIS
     Route: 058
     Dates: start: 20161130
  2. HUMIRA [Suspect]
     Active Substance: ADALIMUMAB
     Indication: SARCOIDOSIS

REACTIONS (5)
  - Post procedural discharge [Recovered/Resolved]
  - Neck pain [Not Recovered/Not Resolved]
  - Pain in extremity [Not Recovered/Not Resolved]
  - Arthralgia [Not Recovered/Not Resolved]
  - Back pain [Not Recovered/Not Resolved]

NARRATIVE: CASE EVENT DATE: 20170201
